FAERS Safety Report 7113461-4 (Version None)
Quarter: 2010Q4

REPORT INFORMATION
  Report Type: 
  Country: None (occurrence: None)
  Receive Date: 20101119
  Receipt Date: 20101105
  Transmission Date: 20110411
  Serious: Yes (Hospitalization)
  Sender: FDA-Public Use
  Company Number: IT-PFIZER INC-IT-WYE-H18297210

PATIENT
  Age: 73 Year
  Sex: Male

DRUGS (6)
  1. PANTOPAN [Suspect]
     Dosage: 40 MG, 1X/DAY
     Route: 048
     Dates: start: 20100903, end: 20100917
  2. KETOPROFEN [Suspect]
     Dosage: 200 MG, 1X/DAY
     Route: 065
     Dates: start: 20100903, end: 20100917
  3. PLAQUENIL [Suspect]
     Dosage: 200 MG, 1X/DAY
     Route: 048
     Dates: start: 20100903, end: 20100917
  4. TERAPROST [Concomitant]
     Dosage: 2 MG, UNK
     Route: 065
     Dates: start: 20060101
  5. ALLOPURINOL [Concomitant]
     Dosage: 300 MG, UNK
     Route: 065
     Dates: start: 20060101
  6. METFORMIN [Concomitant]
     Dosage: 500 MG, UNK
     Route: 065
     Dates: start: 20060101

REACTIONS (1)
  - ACUTE GENERALISED EXANTHEMATOUS PUSTULOSIS [None]
